FAERS Safety Report 7350596-5 (Version None)
Quarter: 2011Q1

REPORT INFORMATION
  Report Type: 
  Country: None (occurrence: None)
  Receive Date: 20110314
  Receipt Date: 20101012
  Transmission Date: 20110831
  Serious: Yes (Hospitalization)
  Sender: FDA-Public Use
  Company Number: JP-MERCK-1008USA00056

PATIENT
  Age: 11 Year
  Sex: Male

DRUGS (45)
  1. PEPCID [Suspect]
     Route: 041
     Dates: start: 20100617, end: 20100626
  2. CEFAZOLIN SODIUM [Suspect]
     Route: 041
     Dates: start: 20100622, end: 20100624
  3. VICCILLIN [Suspect]
     Route: 042
     Dates: start: 20100715, end: 20100716
  4. PIPERACILLIN SODIUM [Suspect]
     Route: 042
     Dates: start: 20100715, end: 20100716
  5. TRICLORYL [Suspect]
     Route: 048
     Dates: start: 20100628, end: 20100705
  6. LAXOBERON [Suspect]
     Route: 048
     Dates: start: 20100620, end: 20100620
  7. GLYCERIN [Suspect]
     Indication: CONSTIPATION
     Route: 054
     Dates: start: 20100621
  8. RISPERDAL [Suspect]
     Route: 048
     Dates: start: 20100702, end: 20100714
  9. LASIX [Suspect]
     Route: 048
     Dates: start: 20100626, end: 20100706
  10. NICARPINE [Suspect]
     Route: 041
     Dates: start: 20100622, end: 20100624
  11. BIOFERMIN [Suspect]
     Route: 048
     Dates: start: 20100711, end: 20100718
  12. TAKEPRON [Suspect]
     Route: 048
     Dates: start: 20100628, end: 20100728
  13. PHENOBAL [Suspect]
     Route: 048
     Dates: start: 20100622, end: 20100709
  14. ALDACTONE [Suspect]
     Route: 048
     Dates: start: 20100626, end: 20100706
  15. DEPAS [Suspect]
     Route: 048
     Dates: start: 20100701, end: 20100701
  16. OMEPRAL [Suspect]
     Route: 041
     Dates: start: 20100716, end: 20100721
  17. FENTANYL [Suspect]
     Route: 041
     Dates: start: 20100621, end: 20100708
  18. LACTOBACILLUS CASEI [Suspect]
     Route: 048
     Dates: start: 20100702, end: 20100709
  19. HEPARIN [Suspect]
     Dosage: 5IU/KG
     Route: 041
     Dates: start: 20100808, end: 20100812
  20. DECADRON [Suspect]
     Route: 041
     Dates: start: 20100617, end: 20100622
  21. ROCURONIUM BROMIDE [Suspect]
     Route: 041
     Dates: start: 20100617, end: 20100706
  22. XYLOCAINE [Suspect]
     Route: 041
     Dates: start: 20100621, end: 20100709
  23. ANHIBA [Suspect]
     Route: 054
     Dates: start: 20100630, end: 20100716
  24. MIDAZOLAM [Suspect]
     Route: 042
     Dates: start: 20100621, end: 20100621
  25. PEPCID [Suspect]
     Route: 048
     Dates: start: 20100626, end: 20100715
  26. CALONAL [Suspect]
     Indication: PYREXIA
     Route: 048
     Dates: start: 20100627, end: 20100716
  27. MORPHINA [Suspect]
     Dosage: 2 MG/KG
     Route: 041
     Dates: start: 20100621, end: 20100709
  28. ULTIVA [Suspect]
     Route: 041
     Dates: start: 20100621, end: 20100708
  29. DIAZEPAM [Suspect]
     Route: 048
     Dates: start: 20100702, end: 20100722
  30. MIDAZOLAM HCL [Suspect]
     Route: 042
     Dates: start: 20100617, end: 20100709
  31. ATROPINE SULFATE [Suspect]
     Route: 041
     Dates: start: 20100617, end: 20100622
  32. ATARAX [Suspect]
     Route: 041
     Dates: start: 20100709, end: 20100709
  33. DIAZEPAM [Suspect]
     Route: 048
     Dates: start: 20100622, end: 20100701
  34. ROCEPHIN [Suspect]
     Indication: INFECTION
     Route: 042
     Dates: start: 20100630, end: 20100707
  35. GLYCEOL (FRUCTOSE (+) GLYCERIN (+) SODIUM CHLORIDE) [Suspect]
     Route: 041
     Dates: start: 20100617, end: 20100618
  36. EPINEPHRINE [Suspect]
     Route: 041
     Dates: start: 20100621, end: 20100621
  37. PANTOL [Suspect]
     Route: 041
     Dates: start: 20100604, end: 20100705
  38. HYALEIN [Suspect]
     Route: 047
     Dates: start: 20100723, end: 20100821
  39. BIOFERMIN R [Suspect]
     Route: 048
     Dates: start: 20100711, end: 20100718
  40. CLINDAMYCIN PHOSPHATE [Suspect]
     Route: 042
     Dates: start: 20100708, end: 20100710
  41. CALCICOL [Suspect]
     Route: 041
     Dates: start: 20100621, end: 20100621
  42. PRECEDEX [Suspect]
     Route: 041
     Dates: start: 20100704, end: 20100705
  43. FLURBIPROFEN [Suspect]
     Route: 041
     Dates: start: 20100709, end: 20100709
  44. TARIVID (OFLOXACIN) [Suspect]
     Route: 047
     Dates: start: 20100728, end: 20100729
  45. HEPARIN SODIUM [Suspect]
     Route: 041
     Dates: start: 20100617

REACTIONS (2)
  - DRUG RASH WITH EOSINOPHILIA AND SYSTEMIC SYMPTOMS [None]
  - LYMPHOCYTE STIMULATION TEST POSITIVE [None]
